FAERS Safety Report 10949944 (Version 1)
Quarter: 2015Q1

REPORT INFORMATION
  Report Type: Spontaneous
  Country: US (occurrence: None)
  Receive Date: 20150323
  Receipt Date: 20150323
  Transmission Date: 20150721
  Serious: Yes (Life-Threatening, Hospitalization, Disabling, Other)
  Sender: FDA-Public Use
  Company Number: None

PATIENT
  Age: 31 Year
  Sex: Female
  Weight: 65.77 kg

DRUGS (4)
  1. ZYPREXA [Suspect]
     Active Substance: OLANZAPINE
     Indication: BIPOLAR DISORDER
     Dosage: 1, TWICE DAILY, TAKEN BY MOUTH
     Route: 048
     Dates: start: 20110411, end: 20150316
  2. PRENATAL VITAMINS FROM  COSTCO [Concomitant]
  3. LATUDA [Concomitant]
     Active Substance: LURASIDONE HYDROCHLORIDE
  4. LITHIUM [Concomitant]
     Active Substance: LITHIUM CARBONATE

REACTIONS (40)
  - Blood growth hormone abnormal [None]
  - Hypotension [None]
  - Back pain [None]
  - Endometriosis [None]
  - Menstruation irregular [None]
  - Hyperglycaemia [None]
  - Abdominal pain upper [None]
  - Seizure [None]
  - Tachycardia [None]
  - Hypertension [None]
  - Dizziness [None]
  - Tardive dyskinesia [None]
  - Depression [None]
  - Gastritis [None]
  - Feeling abnormal [None]
  - Suicidal ideation [None]
  - Vision blurred [None]
  - Cerebral ventricle dilatation [None]
  - Hydrocephalus [None]
  - Infertility [None]
  - Hypoaesthesia [None]
  - Infection [None]
  - Uterine leiomyoma [None]
  - Condition aggravated [None]
  - Blood prolactin increased [None]
  - Blood follicle stimulating hormone abnormal [None]
  - Drug hypersensitivity [None]
  - Somnolence [None]
  - Ulcer [None]
  - Pain [None]
  - Benign breast neoplasm [None]
  - Ovarian cyst [None]
  - Neck pain [None]
  - Speech disorder [None]
  - Menorrhagia [None]
  - Irritability [None]
  - Weight increased [None]
  - Headache [None]
  - Dysmenorrhoea [None]
  - Constipation [None]

NARRATIVE: CASE EVENT DATE: 20150316
